FAERS Safety Report 4511775-5 (Version None)
Quarter: 2004Q4

REPORT INFORMATION
  Report Type: 
  Country: None (occurrence: None)
  Receive Date: 20041129
  Receipt Date: 20031003
  Transmission Date: 20050328
  Serious: Yes (Hospitalization)
  Sender: FDA-Public Use
  Company Number: PHBS2003JP10912

PATIENT
  Age: 41 Year
  Sex: Female
  Weight: 62 kg

DRUGS (2)
  1. TEGRETOL [Suspect]
     Indication: TRIGEMINAL NEURALGIA
     Dosage: 200 MG, BID
     Route: 048
     Dates: start: 20030813, end: 20030917
  2. CYANOCOBALAMIN [Concomitant]
     Indication: TRIGEMINAL NEURALGIA
     Dosage: 500 MG, TID
     Route: 048
     Dates: start: 20030813, end: 20030917

REACTIONS (13)
  - BLISTER [None]
  - C-REACTIVE PROTEIN INCREASED [None]
  - DIABETES MELLITUS NON-INSULIN-DEPENDENT [None]
  - DRUG HYPERSENSITIVITY [None]
  - ERYTHEMA MULTIFORME [None]
  - EYE HAEMORRHAGE [None]
  - HUMAN HERPESVIRUS 6 INFECTION [None]
  - LIVER FUNCTION TEST ABNORMAL [None]
  - LYMPHOEDEMA [None]
  - MALAISE [None]
  - PYREXIA [None]
  - RASH [None]
  - THYROIDITIS [None]
